FAERS Safety Report 7420292-4 (Version None)
Quarter: 2011Q2

REPORT INFORMATION
  Report Type: 
  Country: None (occurrence: None)
  Receive Date: 20110418
  Receipt Date: 20110406
  Transmission Date: 20111010
  Serious: Yes (Hospitalization, Other)
  Sender: FDA-Public Use
  Company Number: PHHY2011US06975

PATIENT
  Sex: Male
  Weight: 94.9 kg

DRUGS (8)
  1. BLOOD TRANSFUSION, AUXILIARY PRODUCTS [Concomitant]
  2. EXJADE [Suspect]
     Indication: IRON OVERLOAD
     Dosage: 1000 MG, QD
     Route: 048
     Dates: start: 20101201, end: 20110211
  3. ZOCOR [Concomitant]
     Dosage: 40 MG PER DAY
     Route: 048
  4. BACTRIM DS [Concomitant]
     Dosage: 4 MG, QD
     Route: 048
     Dates: start: 20100301
  5. LANTUS [Concomitant]
     Dosage: 25 U/DAY
     Route: 058
  6. DAEOGEN [Concomitant]
     Route: 042
  7. JANUVIA [Concomitant]
     Dosage: 50 MG PER DAY
     Route: 048
  8. ANTIBIOTICS [Concomitant]

REACTIONS (3)
  - SINUSITIS [None]
  - INFLUENZA [None]
  - GOUT [None]
